FAERS Safety Report 10018390 (Version 1)
Quarter: 2014Q1

REPORT INFORMATION
  Report Type: Spontaneous
  Country: PL (occurrence: PL)
  Receive Date: 20140318
  Receipt Date: 20140318
  Transmission Date: 20141002
  Serious: Yes (Hospitalization, Other)
  Sender: FDA-Public Use
  Company Number: 2014SP001385

PATIENT
  Age: 67 Year
  Sex: Male
  Weight: 105 kg

DRUGS (1)
  1. OXALIPLATIN [Suspect]
     Indication: RECTAL CANCER
     Route: 042
     Dates: start: 20140117

REACTIONS (6)
  - Dyspnoea [Unknown]
  - Hypoaesthesia [Unknown]
  - Swollen tongue [Unknown]
  - Haematotoxicity [Unknown]
  - Hypersensitivity [Unknown]
  - Anaphylactic reaction [Unknown]
